FAERS Safety Report 5060413-4 (Version None)
Quarter: 2006Q3

REPORT INFORMATION
  Report Type: 
  Country: None (occurrence: None)
  Receive Date: 20060725
  Receipt Date: 20060713
  Transmission Date: 20061208
  Serious: Yes (Other)
  Sender: FDA-Public Use
  Company Number: PHBS2006BG10567

PATIENT
  Age: 49 Year
  Sex: Female
  Weight: 55 kg

DRUGS (5)
  1. AREDIA [Suspect]
     Indication: METASTASES TO BONE
     Dosage: 60 MG, QMO
     Route: 042
     Dates: start: 20031126
  2. ZOMETA [Suspect]
     Indication: METASTASES TO BONE
     Dosage: 4 MG, QMO
     Route: 042
     Dates: end: 20060713
  3. MORPHINE [Concomitant]
     Dosage: 120 MG, QD
     Route: 058
  4. IBUPROFEN [Concomitant]
     Route: 065
  5. R.LAXATIVA [Concomitant]
     Route: 065

REACTIONS (4)
  - GRANULOMA [None]
  - IMPAIRED HEALING [None]
  - SEQUESTRECTOMY [None]
  - TOOTH EXTRACTION [None]
